FAERS Safety Report 5370050-X (Version None)
Quarter: 2007Q2

REPORT INFORMATION
  Report Type: 
  Country: None (occurrence: None)
  Receive Date: 20070626
  Receipt Date: 20070614
  Transmission Date: 20071010
  Serious: Yes (Hospitalization)
  Sender: FDA-Public Use
  Company Number: JP-JNJFOC-20070600444

PATIENT
  Sex: Male
  Weight: 58 kg

DRUGS (9)
  1. REMICADE [Suspect]
     Route: 042
  2. REMICADE [Suspect]
     Route: 042
  3. REMICADE [Suspect]
     Indication: CROHN'S DISEASE
     Route: 042
  4. IMURAN [Suspect]
     Indication: CROHN'S DISEASE
     Route: 048
  5. PENTASA [Concomitant]
     Indication: CROHN'S DISEASE
  6. FERROMIA [Concomitant]
     Indication: CROHN'S DISEASE
     Route: 048
  7. LAC-B [Concomitant]
     Indication: CROHN'S DISEASE
     Route: 048
  8. ELENTAL [Concomitant]
     Indication: CROHN'S DISEASE
     Dosage: DOSE 1200 KCAL
     Route: 048
  9. RACOL [Concomitant]
     Indication: CROHN'S DISEASE
     Dosage: DOSE 200 KCAL
     Route: 048

REACTIONS (1)
  - HYPOKALAEMIA [None]
